FAERS Safety Report 20572227 (Version 1)
Quarter: 2022Q1

REPORT INFORMATION
  Report Type: Spontaneous
  Country: US (occurrence: None)
  Receive Date: 20220308
  Receipt Date: 20220308
  Transmission Date: 20220424
  Serious: No
  Sender: FDA-Public Use
  Company Number: None

PATIENT
  Age: 42 Year
  Sex: Female
  Weight: 60.75 kg

DRUGS (1)
  1. ATOMOXETINE HYDROCHLORIDE [Suspect]
     Active Substance: ATOMOXETINE HYDROCHLORIDE
     Indication: Attention deficit hyperactivity disorder
     Dosage: OTHER QUANTITY : 1 CAPSULE(S);?
     Route: 048
     Dates: start: 20200901, end: 20200907

REACTIONS (7)
  - Product substitution issue [None]
  - Suicidal ideation [None]
  - Drug ineffective [None]
  - Therapeutic response changed [None]
  - Disturbance in attention [None]
  - Mood altered [None]
  - Anxiety [None]

NARRATIVE: CASE EVENT DATE: 20200901
